FAERS Safety Report 8844249 (Version 1)
Quarter: 2012Q4

REPORT INFORMATION
  Report Type: 
  Country: US (occurrence: US)
  Receive Date: 20121017
  Receipt Date: 20121017
  Transmission Date: 20130627
  Serious: Yes (Other)
  Sender: FDA-Public Use
  Company Number: US-AMGEN-USASP2012065594

PATIENT
  Age: 63 Year
  Sex: Male

DRUGS (2)
  1. ENBREL [Suspect]
     Indication: ANKYLOSING SPONDYLITIS
     Dosage: 50 mg, qwk
     Dates: start: 20040101
  2. METHOTREXATE [Concomitant]
     Dosage: 15 mg, qwk
     Route: 048

REACTIONS (3)
  - Knee operation [Recovered/Resolved]
  - Intraocular lens implant [Recovered/Resolved]
  - Eye laser surgery [Recovered/Resolved]
